FAERS Safety Report 5286320-X (Version None)
Quarter: 2007Q1

REPORT INFORMATION
  Report Type: 
  Country: None (occurrence: None)
  Receive Date: 20070116
  Receipt Date: 20061030
  Transmission Date: 20070707
  Serious: No
  Sender: FDA-Public Use
  Company Number: 2006SP003862

PATIENT
  Age: 51 Year
  Sex: Female
  Weight: 104.3273 kg

DRUGS (10)
  1. LUNESTA [Suspect]
     Indication: POOR QUALITY SLEEP
     Dosage: 2 MG;HS;ORAL
     Route: 048
     Dates: start: 20061022, end: 20061028
  2. CEPHALEXIN [Concomitant]
  3. TOPROL-XL [Concomitant]
  4. HYDROCHLOROTHIAZIDE [Concomitant]
  5. ASPIRIN [Concomitant]
  6. NEURONTIN [Concomitant]
  7. INDOMETHACIN [Concomitant]
  8. ZYRTEC [Concomitant]
  9. ANCEF [Concomitant]
  10. PROZAC [Concomitant]

REACTIONS (1)
  - DYSGEUSIA [None]
